FAERS Safety Report 6640206-4 (Version None)
Quarter: 2010Q1

REPORT INFORMATION
  Report Type: 
  Country: None (occurrence: None)
  Receive Date: 20100315
  Receipt Date: 20100308
  Transmission Date: 20100710
  Serious: Yes (Death)
  Sender: FDA-Public Use
  Company Number: 008433

PATIENT
  Sex: Male

DRUGS (8)
  1. KEPPRA [Suspect]
     Dosage: (DAILY DOSE - ONE UNIT ORAL)
     Route: 048
     Dates: start: 20100101, end: 20100202
  2. ASPEGIC /00002703/ (ASPEGIC) (NOT SPECIFIED) [Suspect]
     Dosage: (160 MG ORAL)
     Route: 048
     Dates: start: 20100103
  3. AUGMENTIN '125' [Suspect]
     Dosage: (ORAL)
     Route: 048
     Dates: start: 20091003
  4. LOVENOX [Suspect]
     Dosage: (SUBCUTANEOUS)
     Route: 058
     Dates: start: 20091003, end: 20100202
  5. PROPOFOL [Suspect]
     Indication: SEDATION
     Dates: start: 20100103
  6. LOXEN (LOXEN) [Suspect]
     Dosage: (DAILY DOSE ONE UNIT ORAL)
     Route: 048
     Dates: start: 20100101, end: 20100202
  7. LIORESAL [Suspect]
     Dosage: (ORAL)
     Route: 048
     Dates: start: 20100101
  8. FENTANYL-100 [Suspect]
     Indication: SEDATION
     Dates: start: 20100101

REACTIONS (8)
  - CITROBACTER INFECTION [None]
  - INTRACRANIAL PRESSURE INCREASED [None]
  - LOWER RESPIRATORY TRACT INFECTION BACTERIAL [None]
  - MULTI-ORGAN FAILURE [None]
  - PNEUMONIA ASPIRATION [None]
  - PSEUDOMONAS INFECTION [None]
  - SEPTIC SHOCK [None]
  - TOXIC EPIDERMAL NECROLYSIS [None]
